FAERS Safety Report 16939674 (Version 1)
Quarter: 2020Q3

REPORT INFORMATION
  Report Type: Other
  Country: US (occurrence: US)
  Receive Date: 20191021
  Receipt Date: 20191021
  Transmission Date: 20201105
  Serious: Yes (Death, Life-Threatening, Hospitalization, Other)
  Sender: FDA-Public Use
  Company Number: US-P+L DEVELOPMENTS OF NEWYORK CORPORATION-2075858

PATIENT
  Age: 41 Year
  Sex: Female

DRUGS (3)
  1. DIPHENHYDRAMINE. [Suspect]
     Active Substance: DIPHENHYDRAMINE
     Route: 048
  2. IBUPROFEN. [Suspect]
     Active Substance: IBUPROFEN
     Indication: PRODUCT USED FOR UNKNOWN INDICATION
     Route: 048
  3. FERROUS SULFATE. [Suspect]
     Active Substance: FERROUS SULFATE
     Route: 048

REACTIONS (12)
  - Intentional overdose [Fatal]
  - Shock [Unknown]
  - Hepatic failure [Unknown]
  - Acute respiratory distress syndrome [Unknown]
  - Disseminated intravascular coagulation [Unknown]
  - Toxicity to various agents [Fatal]
  - Oxygen saturation decreased [Unknown]
  - Tachycardia [Unknown]
  - Hypotension [Unknown]
  - Completed suicide [Fatal]
  - Lethargy [Unknown]
  - Condition aggravated [Unknown]
